FAERS Safety Report 7131385-3 (Version None)
Quarter: 2010Q4

REPORT INFORMATION
  Report Type: 
  Country: None (occurrence: None)
  Receive Date: 20101201
  Receipt Date: 20101129
  Transmission Date: 20110411
  Serious: Yes (Death)
  Sender: FDA-Public Use
  Company Number: CHPA2010US18271

PATIENT
  Sex: Female

DRUGS (1)
  1. ASCRIPTIN BUFFERED CAPS UNKNOWN FORMULA (NCH) [Suspect]
     Indication: ARTHRITIS
     Dosage: UNK, UNK
     Route: 048

REACTIONS (2)
  - DEATH [None]
  - INTENTIONAL DRUG MISUSE [None]
